FAERS Safety Report 19007103 (Version 1)
Quarter: 2021Q1

REPORT INFORMATION
  Report Type: Spontaneous
  Country: US (occurrence: US)
  Receive Date: 20210313
  Receipt Date: 20210313
  Transmission Date: 20210420
  Serious: No
  Sender: FDA-Public Use
  Company Number: None

PATIENT
  Age: 64 Year
  Sex: Female
  Weight: 81 kg

DRUGS (8)
  1. METFORMIN [Concomitant]
     Active Substance: METFORMIN HYDROCHLORIDE
  2. ATENOLOL. [Concomitant]
     Active Substance: ATENOLOL
  3. VITAMIN D3 [Concomitant]
     Active Substance: CHOLECALCIFEROL
  4. OXYCODONE HCI [Suspect]
     Active Substance: OXYCODONE HYDROCHLORIDE
     Indication: NEOPLASM MALIGNANT
     Dosage: ?          QUANTITY:3 TABLET(S);?
     Route: 048
     Dates: start: 20201101
  5. ASPIRIN. [Concomitant]
     Active Substance: ASPIRIN
  6. OXYCODONE HCI [Suspect]
     Active Substance: OXYCODONE HYDROCHLORIDE
     Indication: INTERVERTEBRAL DISC PROTRUSION
     Dosage: ?          QUANTITY:3 TABLET(S);?
     Route: 048
     Dates: start: 20201101
  7. PLAVIX [Concomitant]
     Active Substance: CLOPIDOGREL BISULFATE
  8. VITAMIN B12 [Concomitant]
     Active Substance: CYANOCOBALAMIN

REACTIONS (8)
  - Hyperhidrosis [None]
  - Product formulation issue [None]
  - Manufacturing materials issue [None]
  - Nausea [None]
  - Drug ineffective [None]
  - Product substitution issue [None]
  - Inadequate analgesia [None]
  - Product size issue [None]

NARRATIVE: CASE EVENT DATE: 20201111
